FAERS Safety Report 7148234-X (Version None)
Quarter: 2010Q4

REPORT INFORMATION
  Report Type: 
  Country: None (occurrence: None)
  Receive Date: 20101209
  Receipt Date: 20101202
  Transmission Date: 20110411
  Serious: Yes (Other)
  Sender: FDA-Public Use
  Company Number: PHHY2010US80796

PATIENT
  Sex: Male
  Weight: 48.5 kg

DRUGS (6)
  1. EXJADE [Suspect]
     Indication: THALASSAEMIA
     Dosage: 1000 MG, UNK
     Route: 048
     Dates: start: 20030901
  2. EXJADE [Suspect]
     Indication: IRON OVERLOAD
     Dosage: 1000 MG DAILY
     Route: 048
  3. CALCIUM WITH VITAMIN D [Concomitant]
     Dosage: UNK
     Route: 048
     Dates: start: 20100201
  4. VITAMINS [Concomitant]
     Dosage: UNK
     Route: 048
     Dates: start: 20000701
  5. TULTNOI [Concomitant]
     Dosage: UNK
     Route: 048
     Dates: start: 20100820, end: 20100825
  6. ADRIL [Concomitant]
     Dosage: UNK
     Route: 048
     Dates: start: 20100820, end: 20100825

REACTIONS (8)
  - DIARRHOEA [None]
  - FATIGUE [None]
  - HEADACHE [None]
  - MALAISE [None]
  - PANCYTOPENIA [None]
  - PYREXIA [None]
  - SPLENOMEGALY [None]
  - VIRAL TEST POSITIVE [None]
